FAERS Safety Report 26129958 (Version 1)
Quarter: 2025Q4

REPORT INFORMATION
  Report Type: Spontaneous
  Country: US (occurrence: US)
  Receive Date: 20251208
  Receipt Date: 20251208
  Transmission Date: 20260117
  Serious: No
  Sender: BRISTOL-MYERS SQUIBB COMPANY
  Company Number: US-BRISTOL-MYERS SQUIBB COMPANY-2025-164198

PATIENT
  Sex: Male
  Weight: 70.31 kg

DRUGS (1)
  1. ZEPOSIA [Suspect]
     Active Substance: OZANIMOD HYDROCHLORIDE
     Indication: Multiple sclerosis
     Dosage: ONE CAPSULE BY MOUTH ONCE DAILY
     Route: 048

REACTIONS (3)
  - White blood cell count decreased [Unknown]
  - Multiple sclerosis relapse [Unknown]
  - Therapeutic product effect variable [Unknown]
